FAERS Safety Report 14239056 (Version 1)
Quarter: 2017Q4

REPORT INFORMATION
  Report Type: Spontaneous
  Country: US (occurrence: US)
  Receive Date: 20171127
  Receipt Date: 20171127
  Transmission Date: 20180321
  Serious: Yes (Other)
  Sender: FDA-Public Use
  Company Number: None

PATIENT
  Age: 79 Year
  Sex: Male
  Weight: 69.3 kg

DRUGS (16)
  1. LOSARTAN. [Concomitant]
     Active Substance: LOSARTAN
  2. ZYTIGA [Suspect]
     Active Substance: ABIRATERONE ACETATE
     Indication: PROSTATE CANCER
  3. BENZONATATE. [Concomitant]
     Active Substance: BENZONATATE
  4. LUNESTA [Concomitant]
     Active Substance: ESZOPICLONE
  5. FLUTICASONE. [Concomitant]
     Active Substance: FLUTICASONE
  6. MONTELUKAST [Concomitant]
     Active Substance: MONTELUKAST SODIUM
  7. VISION PLUS [Concomitant]
  8. NITROGLYCERIN. [Concomitant]
     Active Substance: NITROGLYCERIN
  9. ATORVASTATIN [Concomitant]
     Active Substance: ATORVASTATIN
  10. MELATONIN [Concomitant]
     Active Substance: MELATONIN
  11. ZYRTEC [Concomitant]
     Active Substance: CETIRIZINE HYDROCHLORIDE
  12. LIPITOR [Concomitant]
     Active Substance: ATORVASTATIN CALCIUM
  13. MULTI FOR HIM 50+ [Concomitant]
  14. AMLODIPINE [Concomitant]
     Active Substance: AMLODIPINE BESYLATE
  15. PLAVIX [Concomitant]
     Active Substance: CLOPIDOGREL BISULFATE
  16. NITROMIST [Concomitant]
     Active Substance: NITROGLYCERIN

REACTIONS (2)
  - Muscular weakness [None]
  - Fatigue [None]
